FAERS Safety Report 8906389 (Version 1)
Quarter: 2012Q4

REPORT INFORMATION
  Report Type: Spontaneous
  Country: US (occurrence: None)
  Receive Date: 20121107
  Receipt Date: 20121107
  Transmission Date: 20130627
  Serious: Yes (Death, Other)
  Sender: FDA-Public Use
  Company Number: 2012P1061305

PATIENT
  Sex: Female
  Weight: .77 kg

DRUGS (18)
  1. FUROSEMIDE [Suspect]
     Indication: PRE-ECLAMPSIA
     Dosage: 30 MG; TRPL 1 DAY
     Route: 064
  2. FUROSEMIDE [Suspect]
     Indication: SWELLING OF LEGS
     Dosage: 30 MG; TRPL 1 DAY
     Route: 064
  3. FUROSEMIDE [Suspect]
     Indication: HEART FAILURE
     Dosage: 30 MG; TRPL 1 DAY
     Route: 064
  4. FUROSEMIDE [Suspect]
     Indication: PRE-ECLAMPSIA
     Dosage: 10 MG; TRPL ; 1 DAY
     Route: 064
  5. FUROSEMIDE [Suspect]
     Indication: SWELLING OF LEGS
     Dosage: 10 MG; TRPL ; 1 DAY
     Route: 064
  6. FUROSEMIDE [Suspect]
     Indication: HEART FAILURE
     Dosage: 10 MG; TRPL ; 1 DAY
     Route: 064
  7. FUROSEMIDE [Suspect]
     Indication: PRE-ECLAMPSIA
     Dosage: 40 MG ; TRPL ; 1 DAY
     Route: 064
  8. FUROSEMIDE [Suspect]
     Indication: SWELLING OF LEGS
     Dosage: 40 MG ; TRPL ; 1 DAY
     Route: 064
  9. FUROSEMIDE [Suspect]
     Indication: HEART FAILURE
     Dosage: 40 MG ; TRPL ; 1 DAY
     Route: 064
  10. FUROSEMIDE [Suspect]
     Indication: PRE-ECLAMPSIA
     Route: 064
  11. FUROSEMIDE [Suspect]
     Indication: SWELLING OF LEGS
     Route: 064
  12. FUROSEMIDE [Suspect]
     Indication: HEART FAILURE
     Route: 064
  13. FUROSEMIDE [Suspect]
     Indication: PRE-ECLAMPSIA
     Route: 064
  14. FUROSEMIDE [Suspect]
     Indication: SWELLING OF LEGS
     Route: 064
  15. FUROSEMIDE [Suspect]
     Indication: HEART FAILURE
     Route: 064
  16. LABETALOL [Concomitant]
  17. PIVMECILLINAM HYDROCHLORIDE [Concomitant]
  18. BETAMETHASONE [Concomitant]

REACTIONS (7)
  - Caesarean section [None]
  - Base excess negative [None]
  - Apgar score abnormal [None]
  - Placental insufficiency [None]
  - Death neonatal [None]
  - Maternal drugs affecting foetus [None]
  - Low birth weight baby [None]
